FAERS Safety Report 7164699-1 (Version None)
Quarter: 2010Q4

REPORT INFORMATION
  Report Type: 
  Country: None (occurrence: None)
  Receive Date: 20101215
  Receipt Date: 20101207
  Transmission Date: 20110411
  Serious: Yes (Hospitalization, Other)
  Sender: FDA-Public Use
  Company Number: BR-ABBOTT-10P-020-0661196-00

PATIENT
  Sex: Female
  Weight: 42 kg

DRUGS (12)
  1. HUMIRA [Suspect]
     Indication: CROHN'S DISEASE
     Route: 058
     Dates: start: 20100401, end: 20100401
  2. HUMIRA [Suspect]
     Route: 058
  3. HUMIRA [Suspect]
     Dates: end: 20100901
  4. HUMIRA [Suspect]
     Route: 058
     Dates: start: 20101001
  5. SERTRALINE HYDROCHLORIDE [Concomitant]
     Indication: MUSCLE RELAXANT THERAPY
     Route: 048
     Dates: start: 20070101
  6. SERTRALINE HYDROCHLORIDE [Concomitant]
     Indication: INSOMNIA
  7. SERTRALINE HYDROCHLORIDE [Concomitant]
     Indication: DEPRESSION
  8. ALTI-CLONAZEPAM [Concomitant]
     Indication: ANXIOLYTIC THERAPY
     Route: 048
     Dates: start: 20070101
  9. ALTI-CLONAZEPAM [Concomitant]
     Indication: INSOMNIA
  10. ALTI-CLONAZEPAM [Concomitant]
     Indication: DEPRESSION
  11. CENTRUM [Concomitant]
     Indication: VITAMIN SUPPLEMENTATION
     Route: 048
  12. CENTRUM [Concomitant]
     Indication: SURGERY

REACTIONS (6)
  - DIARRHOEA HAEMORRHAGIC [None]
  - GASTROINTESTINAL HAEMORRHAGE [None]
  - GASTROINTESTINAL INFLAMMATION [None]
  - INCORRECT DOSE ADMINISTERED [None]
  - INJECTION SITE PAIN [None]
  - TRANSPLANT REJECTION [None]
